FAERS Safety Report 16460831 (Version 1)
Quarter: 2019Q2

REPORT INFORMATION
  Report Type: Spontaneous
  Country: AU (occurrence: AU)
  Receive Date: 20190620
  Receipt Date: 20190620
  Transmission Date: 20190711
  Serious: Yes (Other)
  Sender: FDA-Public Use
  Company Number: PHHY2019AU137875

PATIENT
  Age: 10 Year
  Sex: Male

DRUGS (1)
  1. AMOXICILLIN. [Suspect]
     Active Substance: AMOXICILLIN
     Indication: PRODUCT USED FOR UNKNOWN INDICATION
     Dosage: UNK
     Route: 065

REACTIONS (10)
  - Hepatitis acute [Unknown]
  - Oral mucosa erosion [Unknown]
  - Pyrexia [Unknown]
  - Encephalopathy [Unknown]
  - Toxic epidermal necrolysis [Unknown]
  - Rash morbilliform [Unknown]
  - Pancytopenia [Unknown]
  - Stevens-Johnson syndrome [Unknown]
  - Encephalitis [Unknown]
  - Corneal erosion [Unknown]
